FAERS Safety Report 10296947 (Version 5)
Quarter: 2014Q4

REPORT INFORMATION
  Report Type: Spontaneous
  Country: RU (occurrence: RU)
  Receive Date: 20140711
  Receipt Date: 20141119
  Transmission Date: 20150528
  Serious: Yes (Hospitalization, Other)
  Sender: FDA-Public Use
  Company Number: RU-AMGEN-RUSSP2014051709

PATIENT
  Age: 56 Year
  Sex: Female

DRUGS (8)
  1. FOROSA [Concomitant]
  2. PREDNISOLONE. [Suspect]
     Active Substance: PREDNISOLONE
     Indication: THROMBOCYTOPENIA
     Dosage: 20 MG A DAY
     Route: 048
     Dates: start: 20110106
  3. ASPARCAM                           /06428001/ [Concomitant]
     Indication: HYPERTENSION
     Dosage: 1 MG, TID
     Route: 048
     Dates: start: 20140512
  4. BONVIVA [Concomitant]
     Active Substance: IBANDRONATE SODIUM
  5. TEVANATE [Concomitant]
  6. FOSAMAX [Concomitant]
     Active Substance: ALENDRONATE SODIUM
  7. NPLATE [Suspect]
     Active Substance: ROMIPLOSTIM
     Indication: IMMUNE THROMBOCYTOPENIC PURPURA
     Dosage: 250 MUG, ONCE IN 1-2 WEEKS
     Route: 058
     Dates: start: 20111001, end: 20140512
  8. WOBENZYM                           /02140101/ [Concomitant]
     Indication: HEPATITIS
     Dosage: 2 MG, BID
     Route: 048
     Dates: start: 20140512, end: 20140801

REACTIONS (25)
  - Presbyopia [Unknown]
  - Peripheral venous disease [Unknown]
  - Arthralgia [Unknown]
  - Antiphospholipid syndrome [Unknown]
  - Hypertension [Unknown]
  - Hypercoagulation [Unknown]
  - Left ventricular hypertrophy [Unknown]
  - Angiopathy [Unknown]
  - Pulmonary embolism [Unknown]
  - Autonomic nervous system imbalance [Unknown]
  - Conduction disorder [Unknown]
  - Thrombosis [Unknown]
  - Obesity [Unknown]
  - Oedema [Recovered/Resolved]
  - Hyperaemia [Unknown]
  - Autoimmune thyroiditis [Unknown]
  - Thrombophlebitis migrans [Recovered/Resolved]
  - Pain in extremity [Unknown]
  - Osteopenia [Unknown]
  - Hyperkeratosis [Unknown]
  - Stomatitis [Recovered/Resolved]
  - Thrombophlebitis superficial [Unknown]
  - Intertrigo [Unknown]
  - Cataract [Unknown]
  - Erythema [Unknown]

NARRATIVE: CASE EVENT DATE: 201312
